FAERS Safety Report 15553257 (Version 3)
Quarter: 2019Q1

REPORT INFORMATION
  Report Type: Report from Study
  Country: JP (occurrence: JP)
  Receive Date: 20181026
  Receipt Date: 20190221
  Transmission Date: 20190417
  Serious: Yes (Death)
  Sender: FDA-Public Use
  Company Number: JP-ROCHE-2206152

PATIENT
  Age: 63 Year
  Sex: Male
  Weight: 59 kg

DRUGS (2)
  1. ATEZOLIZUMAB. [Suspect]
     Active Substance: ATEZOLIZUMAB
     Indication: LUNG ADENOCARCINOMA
     Dosage: DOSE INTERVAL UNCERTAINTY
     Route: 041
     Dates: start: 20180816, end: 20180927
  2. DECADRON [Concomitant]
     Active Substance: DEXAMETHASONE
     Indication: DECREASED APPETITE
     Dosage: DOSE INTERVAL UNCERTAINTY
     Route: 048
     Dates: start: 20180824, end: 20181008

REACTIONS (1)
  - Interstitial lung disease [Fatal]

NARRATIVE: CASE EVENT DATE: 20180927
